FAERS Safety Report 9654530 (Version 1)
Quarter: 2013Q4

REPORT INFORMATION
  Report Type: Spontaneous
  Country: IT (occurrence: IT)
  Receive Date: 20131029
  Receipt Date: 20131029
  Transmission Date: 20140711
  Serious: Yes (Other)
  Sender: FDA-Public Use
  Company Number: IT-IPSEN BIOPHARMACEUTICALS, INC.-2013-4595

PATIENT
  Age: 26 Year
  Sex: Female

DRUGS (2)
  1. IPSTYL 90MG [Suspect]
     Indication: MEDULLARY THYROID CANCER
     Dosage: 90 MG
     Route: 058
  2. INTERLEUKIN-2 [Suspect]
     Indication: MEDULLARY THYROID CANCER
     Dosage: 1 000 000 IU EVERY 8 HOURS FOR 5 DAYS
     Route: 058

REACTIONS (1)
  - Disease progression [Unknown]
